FAERS Safety Report 12276518 (Version 1)
Quarter: 2016Q2

REPORT INFORMATION
  Report Type: Spontaneous
  Country: US (occurrence: US)
  Receive Date: 20160418
  Receipt Date: 20160418
  Transmission Date: 20160815
  Serious: No
  Sender: FDA-Public Use
  Company Number: US-GLAXOSMITHKLINE-US2016045658

PATIENT
  Age: 74 Year
  Sex: Male

DRUGS (7)
  1. CARVEDILOL PHOSPHATE. [Suspect]
     Active Substance: CARVEDILOL PHOSPHATE
     Indication: HYPERTENSION
     Dosage: 12.5 MG, BID
     Route: 048
     Dates: start: 20160326
  2. DIOVAN [Concomitant]
     Active Substance: VALSARTAN
  3. BRILINTA [Concomitant]
     Active Substance: TICAGRELOR
  4. NEURONTIN [Concomitant]
     Active Substance: GABAPENTIN
  5. FLOMAX [Concomitant]
     Active Substance: TAMSULOSIN HYDROCHLORIDE
  6. CRESTOR [Concomitant]
     Active Substance: ROSUVASTATIN CALCIUM
  7. PRAZOSIN [Concomitant]
     Active Substance: PRAZOSIN

REACTIONS (6)
  - Peripheral swelling [Not Recovered/Not Resolved]
  - Nephropathy [Not Recovered/Not Resolved]
  - Rash [Not Recovered/Not Resolved]
  - Pain in extremity [Not Recovered/Not Resolved]
  - Urine output decreased [Not Recovered/Not Resolved]
  - Blood creatinine increased [Not Recovered/Not Resolved]

NARRATIVE: CASE EVENT DATE: 201604
